FAERS Safety Report 10915110 (Version 1)
Quarter: 2015Q1

REPORT INFORMATION
  Report Type: Spontaneous
  Country: US (occurrence: US)
  Receive Date: 20150315
  Receipt Date: 20150315
  Transmission Date: 20150721
  Serious: Yes (Hospitalization)
  Sender: FDA-Public Use
  Company Number: US-ASTRAZENECA-2015SE15034

PATIENT
  Age: 313 Day
  Sex: Male

DRUGS (2)
  1. SYNAGIS [Suspect]
     Active Substance: PALIVIZUMAB
     Dosage: 100 MG/ML: 15 MG/KG; MONTHLY
     Route: 030
     Dates: start: 20150204
  2. MULTIVITAMINS LIQ [Concomitant]

REACTIONS (5)
  - Clostridium difficile infection [Recovering/Resolving]
  - Dehydration [Unknown]
  - Enterovirus test positive [Unknown]
  - Diarrhoea haemorrhagic [Recovering/Resolving]
  - Vomiting [Unknown]

NARRATIVE: CASE EVENT DATE: 20150209
